FAERS Safety Report 14115965 (Version 1)
Quarter: 2017Q4

REPORT INFORMATION
  Report Type: Report from Study
  Country: TW (occurrence: TW)
  Receive Date: 20171023
  Receipt Date: 20171023
  Transmission Date: 20180321
  Serious: Yes (Death)
  Sender: FDA-Public Use
  Company Number: TW-PFIZER INC-2017450563

PATIENT

DRUGS (4)
  1. CISPLATIN. [Suspect]
     Active Substance: CISPLATIN
     Dosage: 30-40 MG/M2 BY INTRAVENOUS INFUSION FOR 2-3 H, WEEKLY
     Route: 041
  2. DOCETAXEL. [Suspect]
     Active Substance: DOCETAXEL
     Indication: SQUAMOUS CELL CARCINOMA OF HEAD AND NECK
     Dosage: 60-75 MG/M2, 1-H INFUSION ON DAY 1, EVERY 3 WEEKS
     Route: 041
  3. FLUOROURACIL. [Suspect]
     Active Substance: FLUOROURACIL
     Indication: SQUAMOUS CELL CARCINOMA OF HEAD AND NECK
     Dosage: 600-750 MG/M2, PER DAY ADMINISTERED BY CONTINUOUS INFUSION ON DAYS 1 TO 5, EVERY 3 WEEKS
     Route: 041
  4. CISPLATIN. [Suspect]
     Active Substance: CISPLATIN
     Indication: SQUAMOUS CELL CARCINOMA OF HEAD AND NECK
     Dosage: 60-75 MG/M2, ADMINISTERED AS A 3-H INFUSION ON DAY 1, EVERY 3 WEEKS
     Route: 041

REACTIONS (1)
  - Death [Fatal]
